FAERS Safety Report 8313666-0 (Version None)
Quarter: 2012Q2

REPORT INFORMATION
  Report Type: 
  Country: None (occurrence: None)
  Receive Date: 20120426
  Receipt Date: 20120423
  Transmission Date: 20120825
  Serious: No
  Sender: FDA-Public Use
  Company Number: US-B.I. PHARMACEUTICALS,INC./RIDGEFIELD-2012-BP-09206BP

PATIENT
  Age: 82 Year
  Sex: Male

DRUGS (9)
  1. NITROGLYCERIN [Concomitant]
  2. PRADAXA [Suspect]
     Dosage: 300 MG
     Route: 048
     Dates: start: 20110801
  3. CLONIDINE [Concomitant]
  4. LOSARTAN POTASSIUM [Concomitant]
  5. NIFEDIPINE [Concomitant]
  6. PRAZOSIN HCL [Concomitant]
  7. FUROSEMIDE [Concomitant]
  8. METOPROLOL TARTRATE [Concomitant]
  9. XANAX [Concomitant]

REACTIONS (2)
  - ERUCTATION [None]
  - FLATULENCE [None]
